FAERS Safety Report 4431883-7 (Version None)
Quarter: 2004Q3

REPORT INFORMATION
  Report Type: 
  Country: None (occurrence: None)
  Receive Date: 20040819
  Receipt Date: 20040804
  Transmission Date: 20050211
  Serious: Yes (Hospitalization)
  Sender: FDA-Public Use
  Company Number: 04P-163-0269225-00

PATIENT
  Age: 71 Year
  Sex: Female
  Weight: 61.4624 kg

DRUGS (5)
  1. SYNTHROID [Suspect]
     Indication: HYPOTHYROIDISM
     Dosage: 50 MCG, 1 IN 1 D, PER ORAL
     Route: 048
     Dates: start: 19600101
  2. FUROSEMIDE [Concomitant]
  3. FLUTICASONE PROPIONATE [Concomitant]
  4. POTASSIUM CHLORIDE [Concomitant]
  5. NEOMYCIN [Concomitant]

REACTIONS (4)
  - OSTEOPOROSIS [None]
  - PELVIC FRACTURE [None]
  - SPINAL COMPRESSION FRACTURE [None]
  - WEIGHT INCREASED [None]
